FAERS Safety Report 20894760 (Version 1)
Quarter: 2022Q2

REPORT INFORMATION
  Report Type: Spontaneous
  Country: FR (occurrence: FR)
  Receive Date: 20220531
  Receipt Date: 20220531
  Transmission Date: 20220721
  Serious: Yes (Other)
  Sender: FDA-Public Use
  Company Number: FR-PFIZER INC-202200774215

PATIENT
  Age: 72 Year
  Sex: Male
  Weight: 70 kg

DRUGS (3)
  1. VYNDAQEL [Suspect]
     Active Substance: TAFAMIDIS MEGLUMINE
     Indication: Cardiac amyloidosis
     Dosage: 20 MG, DAILY
     Dates: end: 20210924
  2. FUROSEMIDE [Concomitant]
     Active Substance: FUROSEMIDE
     Dosage: 250 MG, DAILY
  3. XARELTO [Concomitant]
     Active Substance: RIVAROXABAN
     Dosage: 15 MG, DAILY

REACTIONS (1)
  - Cardiac failure chronic [Unknown]
